FAERS Safety Report 20790742 (Version 1)
Quarter: 2022Q2

REPORT INFORMATION
  Report Type: Spontaneous
  Country: US (occurrence: None)
  Receive Date: 20220505
  Receipt Date: 20220505
  Transmission Date: 20220720
  Serious: Yes (Other)
  Sender: FDA-Public Use
  Company Number: None

PATIENT
  Age: 64 Year
  Sex: Female
  Weight: 48.6 kg

DRUGS (1)
  1. ISOVUE 300 [Suspect]
     Active Substance: IOPAMIDOL
     Dosage: FREQUENCY : AS NEEDED;?
     Route: 042

REACTIONS (5)
  - Swelling face [None]
  - Erythema [None]
  - Erythema [None]
  - Rash macular [None]
  - Contrast media reaction [None]

NARRATIVE: CASE EVENT DATE: 20220421
